FAERS Safety Report 24067067 (Version 2)
Quarter: 2025Q3

REPORT INFORMATION
  Report Type: Spontaneous
  Country: US (occurrence: US)
  Receive Date: 20240709
  Receipt Date: 20250821
  Transmission Date: 20251020
  Serious: No
  Sender: ROCHE
  Company Number: US-ROCHE-10000010551

PATIENT
  Age: 11 Year
  Sex: Male
  Weight: 45.36 kg

DRUGS (2)
  1. ACTEMRA [Suspect]
     Active Substance: TOCILIZUMAB
     Indication: Product used for unknown indication
     Dosage: STRENGTH: 162MG/0.9ML
     Route: 065
     Dates: start: 20230515
  2. ILARIS [Concomitant]
     Active Substance: CANAKINUMAB

REACTIONS (2)
  - Arthralgia [Recovered/Resolved]
  - Discomfort [Recovered/Resolved]
